FAERS Safety Report 7082127-1 (Version None)
Quarter: 2010Q4

REPORT INFORMATION
  Report Type: 
  Country: None (occurrence: None)
  Receive Date: 20101103
  Receipt Date: 20101028
  Transmission Date: 20110411
  Serious: No
  Sender: FDA-Public Use
  Company Number: US-PFIZER INC-2010138807

PATIENT
  Sex: Male
  Weight: 79.378 kg

DRUGS (5)
  1. CELEBREX [Suspect]
     Indication: ARTHROPATHY
     Dosage: 200 MG, 1X/DAY
     Dates: start: 20101001, end: 20101001
  2. ACETAMINOPHEN AND OXYCODONE HCL [Concomitant]
     Indication: PAIN
     Dosage: UNK
  3. PARACETAMOL/ CAFFEINE [Concomitant]
     Dosage: UNK
  4. MOTRIN [Concomitant]
     Dosage: UNK
  5. INSULIN [Concomitant]
     Dosage: UNK

REACTIONS (2)
  - BLISTER [None]
  - RASH PRURITIC [None]
